FAERS Safety Report 8747814 (Version 2)
Quarter: 2013Q4

REPORT INFORMATION
  Report Type: Spontaneous
  Country: FR (occurrence: FR)
  Receive Date: 20120827
  Receipt Date: 20131023
  Transmission Date: 20140711
  Serious: Yes (Hospitalization)
  Sender: FDA-Public Use
  Company Number: FR-ASTRAZENECA-2012SE60105

PATIENT
  Age: 76 Year
  Sex: Male

DRUGS (6)
  1. ZESTRIL [Suspect]
     Indication: HYPERTENSION
     Route: 048
     Dates: end: 20111229
  2. IBUPROFENE [Interacting]
     Indication: HEADACHE
     Route: 048
     Dates: start: 20111227
  3. RASILEZ [Interacting]
     Indication: HYPERTENSION
     Route: 048
     Dates: end: 20111229
  4. LOXEN [Concomitant]
  5. SYMBICORT TURBUHALER [Concomitant]
  6. TRUSOPT [Concomitant]

REACTIONS (6)
  - Drug interaction [Unknown]
  - Electrocardiogram repolarisation abnormality [Recovered/Resolved]
  - Renal failure acute [Recovered/Resolved]
  - Hyperkalaemia [Recovered/Resolved]
  - Anuria [Recovering/Resolving]
  - Headache [Recovering/Resolving]
